FAERS Safety Report 19397834 (Version 2)
Quarter: 2022Q1

REPORT INFORMATION
  Report Type: Spontaneous
  Country: US (occurrence: US)
  Receive Date: 20210610
  Receipt Date: 20220216
  Transmission Date: 20220424
  Serious: Yes (Other)
  Sender: FDA-Public Use
  Company Number: US-GILEAD-2021-0534896

PATIENT
  Age: 39 Year
  Sex: Male
  Weight: 93.424 kg

DRUGS (34)
  1. ATRIPLA [Suspect]
     Active Substance: EFAVIRENZ\EMTRICITABINE\TENOFOVIR DISOPROXIL FUMARATE
     Indication: HIV infection
     Dosage: UNK
     Route: 048
     Dates: start: 2006, end: 201508
  2. TRIUMEQ [Concomitant]
     Active Substance: ABACAVIR SULFATE\DOLUTEGRAVIR SODIUM\LAMIVUDINE
  3. ADVAIR HFA [Concomitant]
     Active Substance: FLUTICASONE PROPIONATE\SALMETEROL XINAFOATE
  4. ALBUTEROL SULFATE [Concomitant]
     Active Substance: ALBUTEROL SULFATE
  5. ALENDRONATE [Concomitant]
     Active Substance: ALENDRONATE SODIUM
  6. BENZONATATE [Concomitant]
     Active Substance: BENZONATATE
  7. BETAMETHASONE [Concomitant]
     Active Substance: BETAMETHASONE
  8. BUDESONIDE [Concomitant]
     Active Substance: BUDESONIDE
  9. HYDROCHLOROTHIAZIDE [Concomitant]
     Active Substance: HYDROCHLOROTHIAZIDE
  10. INDOMETHACIN [Concomitant]
     Active Substance: INDOMETHACIN
  11. KETOROLAC [Concomitant]
     Active Substance: KETOROLAC TROMETHAMINE
  12. DOXYCYCLINE [Concomitant]
     Active Substance: DOXYCYCLINE
  13. LIPITOR [Concomitant]
     Active Substance: ATORVASTATIN CALCIUM
  14. LISINOPRIL [Concomitant]
     Active Substance: LISINOPRIL
  15. LORATADINE [Concomitant]
     Active Substance: LORATADINE
  16. LORATADINE [Concomitant]
     Active Substance: LORATADINE
  17. MAXZIDE [Concomitant]
     Active Substance: HYDROCHLOROTHIAZIDE\TRIAMTERENE
  18. MELOXICAM [Concomitant]
     Active Substance: MELOXICAM
  19. METAXALONE [Concomitant]
     Active Substance: METAXALONE
  20. MUCINEX [Concomitant]
     Active Substance: GUAIFENESIN
  21. NAPROXEN [Concomitant]
     Active Substance: NAPROXEN
  22. PRAVASTATIN [Concomitant]
     Active Substance: PRAVASTATIN
  23. PREDNISONE [Concomitant]
     Active Substance: PREDNISONE
  24. PROMETHAZINE [Concomitant]
     Active Substance: PROMETHAZINE HYDROCHLORIDE
  25. ROSUVASTATIN [Concomitant]
     Active Substance: ROSUVASTATIN
  26. SIMVASTATIN [Concomitant]
     Active Substance: SIMVASTATIN
  27. SOLU-MEDROL [Concomitant]
     Active Substance: METHYLPREDNISOLONE SODIUM SUCCINATE
  28. SYMBICORT [Concomitant]
     Active Substance: BUDESONIDE\FORMOTEROL FUMARATE DIHYDRATE
  29. TIZANIDINE [Concomitant]
     Active Substance: TIZANIDINE
  30. TRAMADOL [Concomitant]
     Active Substance: TRAMADOL
  31. TRIAMCINOLONE [Concomitant]
     Active Substance: TRIAMCINOLONE
  32. TRIAMTERENE [Concomitant]
     Active Substance: TRIAMTERENE
  33. VENTOLIN [Concomitant]
     Active Substance: ALBUTEROL SULFATE
  34. ASPIRIN [Concomitant]
     Active Substance: ASPIRIN

REACTIONS (9)
  - Osteoporosis [Unknown]
  - Bone density decreased [Unknown]
  - Emotional distress [Not Recovered/Not Resolved]
  - Anhedonia [Not Recovered/Not Resolved]
  - Pain [Not Recovered/Not Resolved]
  - Anxiety [Not Recovered/Not Resolved]
  - Osteopenia [Not Recovered/Not Resolved]
  - Asthenia [Unknown]
  - Vitamin D deficiency [Not Recovered/Not Resolved]

NARRATIVE: CASE EVENT DATE: 20071001
